FAERS Safety Report 8258127-2 (Version None)
Quarter: 2012Q2

REPORT INFORMATION
  Report Type: 
  Country: None (occurrence: None)
  Receive Date: 20120404
  Receipt Date: 20120327
  Transmission Date: 20120825
  Serious: Yes (Death, Hospitalization)
  Sender: FDA-Public Use
  Company Number: PHHY2012DK028164

PATIENT
  Age: 71 Year
  Sex: Male

DRUGS (4)
  1. DUMOLID [Concomitant]
     Dosage: 3 MG, QD
     Route: 048
  2. PARLODEL [Suspect]
     Dosage: 40 MG, QD
     Route: 048
  3. MADOPAR [Suspect]
     Dosage: 1 DF, QD (8 DOSAGE FORMS)
     Route: 048
  4. SELEGILINE HCL [Suspect]
     Dosage: 5 MG, QD
     Route: 048
     Dates: start: 19800714, end: 19800830

REACTIONS (3)
  - HALLUCINATION [None]
  - DYSTONIA [None]
  - DEATH [None]
